FAERS Safety Report 7388603-6 (Version None)
Quarter: 2011Q1

REPORT INFORMATION
  Report Type: 
  Country: None (occurrence: None)
  Receive Date: 20110329
  Receipt Date: 20110329
  Transmission Date: 20110831
  Serious: Yes (Other)
  Sender: FDA-Public Use
  Company Number: None

PATIENT
  Sex: Female
  Weight: 126.4 kg

DRUGS (3)
  1. BONIVA [Suspect]
     Indication: OSTEOPOROSIS
     Dosage: 3 MG / ML Q3 MONTHS IV
     Route: 042
     Dates: start: 20101123
  2. BONIVA [Suspect]
     Indication: OSTEOPOROSIS
     Dosage: 3 MG / ML Q3 MONTHS IV
     Route: 042
     Dates: start: 20100824
  3. BONIVA [Suspect]
     Indication: OSTEOPOROSIS
     Dosage: 3 MG / ML Q3 MONTHS IV
     Route: 042
     Dates: start: 20110216

REACTIONS (6)
  - CONTUSION [None]
  - ARTHRALGIA [None]
  - JOINT SWELLING [None]
  - PRODUCT CONTAMINATION [None]
  - MYALGIA [None]
  - NO REACTION ON PREVIOUS EXPOSURE TO DRUG [None]
